FAERS Safety Report 12518669 (Version 2)
Quarter: 2016Q3

REPORT INFORMATION
  Report Type: Report from Study
  Country: CA (occurrence: CA)
  Receive Date: 20160630
  Receipt Date: 20160801
  Transmission Date: 20161109
  Serious: Yes (Hospitalization, Other)
  Sender: FDA-Public Use
  Company Number: CA-JNJFOC-20160606787

PATIENT
  Age: 27 Year
  Sex: Male
  Weight: 58.06 kg

DRUGS (3)
  1. REMICADE [Suspect]
     Active Substance: INFLIXIMAB
     Indication: CROHN^S DISEASE
     Dosage: DOSE NUMBER 1 OF REINDUCTION
     Route: 042
     Dates: start: 20160715
  2. REMICADE [Suspect]
     Active Substance: INFLIXIMAB
     Indication: CROHN^S DISEASE
     Route: 042
     Dates: start: 20160607
  3. REMICADE [Suspect]
     Active Substance: INFLIXIMAB
     Indication: CROHN^S DISEASE
     Route: 042
     Dates: start: 201511

REACTIONS (3)
  - Fistula [Recovering/Resolving]
  - Scrotal abscess [Recovering/Resolving]
  - Staphylococcus test [Unknown]

NARRATIVE: CASE EVENT DATE: 20160525
